FAERS Safety Report 7347762-1 (Version None)
Quarter: 2011Q1

REPORT INFORMATION
  Report Type: 
  Country: None (occurrence: None)
  Receive Date: 20110302
  Receipt Date: 20110221
  Transmission Date: 20110831
  Serious: Yes (Other)
  Sender: FDA-Public Use
  Company Number: 017247

PATIENT
  Sex: Female
  Weight: 100 kg

DRUGS (6)
  1. VITAMIN A [Concomitant]
  2. CALCIUM [Concomitant]
  3. METHOTREXATE [Concomitant]
  4. CIMZIA [Suspect]
     Indication: RHEUMATOID ARTHRITIS
     Dosage: (200 MG 1X/2 WEEKS SUBCUTANEOUS)
     Route: 058
     Dates: start: 20100729, end: 20101001
  5. PREDNISONE [Concomitant]
  6. LEUCOVORIN /00566701/ [Concomitant]

REACTIONS (6)
  - HERPES ZOSTER [None]
  - BURNING SENSATION [None]
  - PAIN IN EXTREMITY [None]
  - PSORIASIS [None]
  - BACK PAIN [None]
  - TREATMENT FAILURE [None]
